FAERS Safety Report 24411677 (Version 1)
Quarter: 2024Q4

REPORT INFORMATION
  Report Type: Spontaneous
  Country: US (occurrence: US)
  Receive Date: 20241008
  Receipt Date: 20241008
  Transmission Date: 20250115
  Serious: No
  Sender: PFIZER
  Company Number: US-PFIZER INC-202400268739

PATIENT
  Age: 51 Year
  Sex: Female
  Weight: 76.19 kg

DRUGS (5)
  1. PREMARIN [Suspect]
     Active Substance: ESTROGENS, CONJUGATED
     Indication: Vulvovaginal dryness
     Dosage: 0.45 MG, DAILY (BEFORE BEDTIME)
     Route: 048
     Dates: start: 20240906
  2. MYRBETRIQ [Concomitant]
     Active Substance: MIRABEGRON
     Indication: Urethral injury
     Dosage: ONCE A DAY, BROWN
  3. PROBIOTICS NOS [Concomitant]
     Active Substance: PROBIOTICS NOS
     Dosage: UNK, DAILY
  4. VALTREX [Concomitant]
     Active Substance: VALACYCLOVIR HYDROCHLORIDE
     Indication: Herpes simplex
     Dosage: 500 MILLIGRAMS I TAKE 2 DAILY
  5. VITAMINS NOS [Concomitant]
     Active Substance: VITAMINS
     Dosage: UNK

REACTIONS (10)
  - Headache [Unknown]
  - Vaginal disorder [Unknown]
  - Vulvovaginal pruritus [Unknown]
  - Vulvovaginal burning sensation [Unknown]
  - Tremor [Unknown]
  - Muscle spasms [Unknown]
  - Arthralgia [Unknown]
  - Itching scar [Unknown]
  - Therapeutic response unexpected [Unknown]
  - Weight increased [Unknown]

NARRATIVE: CASE EVENT DATE: 20240101
